FAERS Safety Report 9495705 (Version 1)
Quarter: 2013Q3

REPORT INFORMATION
  Report Type: Spontaneous
  Country: FR (occurrence: FR)
  Receive Date: 20130903
  Receipt Date: 20130903
  Transmission Date: 20140515
  Serious: Yes (Hospitalization)
  Sender: FDA-Public Use
  Company Number: FR-BAYER-2013-102861

PATIENT
  Age: 73 Year
  Sex: Male

DRUGS (4)
  1. CIFLOX [Suspect]
     Indication: SEPSIS
     Dosage: 500 MG, BID
     Route: 048
     Dates: start: 20130705
  2. PREVISCAN [Suspect]
     Indication: DEEP VEIN THROMBOSIS
     Dosage: 1 DF, QD
     Route: 048
     Dates: start: 20130702, end: 20130713
  3. ARIXTRA [Suspect]
     Indication: DEEP VEIN THROMBOSIS
     Dosage: 1 DF, QD
     Route: 058
     Dates: start: 20130713, end: 20130716
  4. STAGID [Suspect]
     Indication: TYPE 2 DIABETES MELLITUS
     Dosage: 700 MG, TID
     Route: 048

REACTIONS (1)
  - Haematoma [Recovering/Resolving]
